FAERS Safety Report 6429763-0 (Version None)
Quarter: 2009Q4

REPORT INFORMATION
  Report Type: 
  Country: None (occurrence: None)
  Receive Date: 20091104
  Receipt Date: 20091104
  Transmission Date: 20100525
  Serious: Yes (Disabling)
  Sender: FDA-Public Use
  Company Number: None

PATIENT
  Sex: Female

DRUGS (2)
  1. BONIVA [Suspect]
     Dates: start: 20080101, end: 20080201
  2. ACTONEL [Suspect]
     Dates: start: 20070901

REACTIONS (4)
  - BLINDNESS [None]
  - NERVE COMPRESSION [None]
  - OPTIC NERVE DISORDER [None]
  - SCLERITIS [None]
